FAERS Safety Report 12577274 (Version 1)
Quarter: 2016Q3

REPORT INFORMATION
  Report Type: Spontaneous
  Country: US (occurrence: US)
  Receive Date: 20160720
  Receipt Date: 20160720
  Transmission Date: 20161109
  Serious: No
  Sender: FDA-Public Use
  Company Number: US-PERRIGO-15US013365

PATIENT
  Age: 35 Year
  Sex: Female
  Weight: 63.49 kg

DRUGS (2)
  1. MICONAZOLE 1 [Suspect]
     Active Substance: MICONAZOLE NITRATE
     Indication: VULVOVAGINAL MYCOTIC INFECTION
     Dosage: 1200 MG, SINGLE
     Route: 067
     Dates: start: 20151216, end: 20151216
  2. NUVARING [Concomitant]
     Active Substance: ETHINYL ESTRADIOL\ETONOGESTREL
     Indication: CONTRACEPTION
     Dosage: UNK
     Route: 065
     Dates: start: 2005

REACTIONS (8)
  - Chemical injury [Not Recovered/Not Resolved]
  - Vulvovaginal burning sensation [Recovering/Resolving]
  - Application site pain [None]
  - Application site vesicles [None]
  - Vulvovaginal swelling [Recovering/Resolving]
  - Vaginal mucosal blistering [Recovering/Resolving]
  - Vulvovaginal discomfort [Not Recovered/Not Resolved]
  - Application site swelling [None]

NARRATIVE: CASE EVENT DATE: 20151216
